FAERS Safety Report 8760095 (Version 2)
Quarter: 2012Q4

REPORT INFORMATION
  Report Type: 
  Country: FR (occurrence: FR)
  Receive Date: 20120829
  Receipt Date: 20120830
  Transmission Date: 20130627
  Serious: Yes (Hospitalization)
  Sender: FDA-Public Use
  Company Number: FR-ASTRAZENECA-2012SE57086

PATIENT
  Age: 17 Year
  Sex: Female

DRUGS (5)
  1. MOPRAL [Suspect]
     Route: 048
     Dates: start: 20120723, end: 20120723
  2. ADVIL [Suspect]
     Dosage: 600 MG OF TOTAL DOSE
     Route: 048
     Dates: start: 20120724, end: 20120725
  3. PROFENID [Suspect]
     Route: 048
     Dates: start: 20120723, end: 20120724
  4. PROFENID [Suspect]
     Route: 048
     Dates: start: 20120724
  5. PRIMPERAN [Concomitant]

REACTIONS (3)
  - Renal failure acute [Recovered/Resolved]
  - Tubulointerstitial nephritis [Recovered/Resolved]
  - Intentional drug misuse [Unknown]
